FAERS Safety Report 6592742-7 (Version None)
Quarter: 2010Q1

REPORT INFORMATION
  Report Type: 
  Country: None (occurrence: None)
  Receive Date: 20100212
  Receipt Date: 20100127
  Transmission Date: 20100710
  Serious: Yes (Death)
  Sender: FDA-Public Use
  Company Number: 008598

PATIENT
  Sex: Male

DRUGS (3)
  1. PLETAL [Suspect]
     Indication: CEREBRAL INFARCTION
     Dosage: 50 MG, DAILY DOSE, ORAL
     Route: 048
  2. NORVASC [Concomitant]
  3. DIOVAN [Concomitant]

REACTIONS (4)
  - ABULIA [None]
  - CEREBRAL INFARCTION [None]
  - CONDITION AGGRAVATED [None]
  - RESTLESSNESS [None]
